FAERS Safety Report 6157688-7 (Version None)
Quarter: 2009Q2

REPORT INFORMATION
  Report Type: 
  Country: None (occurrence: None)
  Receive Date: 20090416
  Receipt Date: 20090402
  Transmission Date: 20091009
  Serious: Yes (Death)
  Sender: FDA-Public Use
  Company Number: SE-GENENTECH-278071

PATIENT
  Age: 53 Year
  Sex: Male

DRUGS (7)
  1. MABTHERA [Suspect]
     Indication: LYMPHATIC DISORDER
     Dosage: 3.2 UNK, UNK
     Route: 042
     Dates: start: 20020902, end: 20020923
  2. LANSOPRAZOLE [Concomitant]
     Indication: DRUG USE FOR UNKNOWN INDICATION
  3. SENDOXAN [Concomitant]
     Indication: DRUG USE FOR UNKNOWN INDICATION
  4. WARFARIN SODIUM [Concomitant]
     Indication: DRUG USE FOR UNKNOWN INDICATION
  5. APOZEPAM [Concomitant]
     Indication: DRUG USE FOR UNKNOWN INDICATION
  6. PREDNISOLONE [Concomitant]
     Indication: DRUG USE FOR UNKNOWN INDICATION
  7. VINCRISTINE [Concomitant]
     Indication: DRUG USE FOR UNKNOWN INDICATION

REACTIONS (2)
  - LEUKOENCEPHALOPATHY [None]
  - PROGRESSIVE MULTIFOCAL LEUKOENCEPHALOPATHY [None]
